FAERS Safety Report 9501083 (Version 1)
Quarter: 2013Q1

REPORT INFORMATION
  Report Type: Spontaneous
  Country: US (occurrence: None)
  Receive Date: 20130107
  Receipt Date: 20130107
  Transmission Date: 20140127
  Serious: No
  Sender: FDA-Public Use
  Company Number: PHEH2012US018876

PATIENT
  Age: 51 Year
  Sex: Female

DRUGS (6)
  1. GILENYA (FTY) CAPSULE, 0.5MG [Suspect]
     Route: 048
  2. ZANAFLEX (TIZANIDINE HYDROCHLORIDE) [Concomitant]
  3. BACLOFEN (BACLOFEN) [Concomitant]
  4. EVISTA (RALOXIFENE HYDROCHLORIDE) [Concomitant]
  5. NORVASC (AMLODIPINE BESILATE) [Concomitant]
  6. PAXIL (PAROXETINE HYDROCHLORIDE) [Concomitant]

REACTIONS (1)
  - Rash [None]
